FAERS Safety Report 24895029 (Version 1)
Quarter: 2025Q1

REPORT INFORMATION
  Report Type: Other
  Country: CA (occurrence: CA)
  Receive Date: 20250128
  Receipt Date: 20250128
  Transmission Date: 20250409
  Serious: Yes (Other)
  Sender: B BRAUN
  Company Number: CA-B.Braun Medical Inc.-2169933

PATIENT
  Age: 39 Year
  Sex: Female

DRUGS (3)
  1. ACETAMINOPHEN [Suspect]
     Active Substance: ACETAMINOPHEN
  2. PERCOCET [Suspect]
     Active Substance: ACETAMINOPHEN\OXYCODONE HYDROCHLORIDE
  3. Suboxone therapy [Concomitant]

REACTIONS (4)
  - Nasal necrosis [Unknown]
  - Off label use [Unknown]
  - Drug abuse [Unknown]
  - Nasal septum perforation [Unknown]
